FAERS Safety Report 4387817-7 (Version None)
Quarter: 2004Q2

REPORT INFORMATION
  Report Type: 
  Country: None (occurrence: None)
  Receive Date: 20040630
  Receipt Date: 20040528
  Transmission Date: 20050107
  Serious: Yes (Other)
  Sender: FDA-Public Use
  Company Number: PHFR2004GB02309

PATIENT
  Age: 76 Year
  Sex: Male
  Weight: 83 kg

DRUGS (8)
  1. DIOVAN [Suspect]
     Indication: CARDIAC FAILURE
     Dosage: 80MG/DAY
     Route: 048
     Dates: start: 20030227
  2. OMEPRAZOLE [Concomitant]
     Dosage: 20 MG, QD
  3. NEO-NACLEX [Concomitant]
     Dosage: UNK, QD
  4. QUININE [Concomitant]
     Dosage: 300MG NOCTE
  5. ASPIRIN [Concomitant]
     Dosage: 75 MG, QD
  6. SIMVASTATIN [Concomitant]
     Dosage: 10 MG, QD
  7. ACETAMINOPHEN [Concomitant]
     Dosage: PRN
  8. HAELAN [Concomitant]
     Dosage: 0.0125% PRN CREAM

REACTIONS (6)
  - BLOOD CREATININE INCREASED [None]
  - CHILLS [None]
  - MALAISE [None]
  - SWOLLEN TONGUE [None]
  - URTICARIA [None]
  - URTICARIA PAPULAR [None]
